FAERS Safety Report 7442910-7 (Version None)
Quarter: 2011Q2

REPORT INFORMATION
  Report Type: 
  Country: None (occurrence: None)
  Receive Date: 20110428
  Receipt Date: 20110419
  Transmission Date: 20111010
  Serious: Yes (Hospitalization, Other)
  Sender: FDA-Public Use
  Company Number: US-ASTRAZENECA-2010SE47556

PATIENT
  Age: 30597 Day
  Sex: Female
  Weight: 54.4 kg

DRUGS (5)
  1. METOPROLOL [Concomitant]
  2. NEXIUM [Suspect]
     Route: 048
  3. PRILOSEC [Suspect]
     Route: 048
  4. DIOVAN HCT [Concomitant]
  5. LIPITOR [Concomitant]

REACTIONS (7)
  - PEPTIC ULCER HAEMORRHAGE [None]
  - PEPTIC ULCER [None]
  - BLOOD SODIUM DECREASED [None]
  - DRUG INEFFECTIVE [None]
  - DIVERTICULITIS [None]
  - HAEMORRHOIDAL HAEMORRHAGE [None]
  - DRUG DOSE OMISSION [None]
